FAERS Safety Report 16628005 (Version 1)
Quarter: 2019Q3

REPORT INFORMATION
  Report Type: Spontaneous
  Country: US (occurrence: US)
  Receive Date: 20190724
  Receipt Date: 20190724
  Transmission Date: 20191004
  Serious: No
  Sender: FDA-Public Use
  Company Number: US-JNJFOC-20190733302

PATIENT
  Sex: Female

DRUGS (1)
  1. IMBRUVICA [Suspect]
     Active Substance: IBRUTINIB
     Indication: PRODUCT USE IN UNAPPROVED INDICATION
     Dosage: 560 MG, UNK
     Route: 048

REACTIONS (2)
  - Urticaria [Unknown]
  - Hypersensitivity [Unknown]
